FAERS Safety Report 21730590 (Version 2)
Quarter: 2023Q2

REPORT INFORMATION
  Report Type: Spontaneous
  Country: JP (occurrence: JP)
  Receive Date: 20221215
  Receipt Date: 20230523
  Transmission Date: 20230721
  Serious: Yes (Other)
  Sender: FDA-Public Use
  Company Number: JP-SA-2022SA503655

PATIENT
  Age: 70 Year
  Sex: Female

DRUGS (3)
  1. DUPIXENT [Suspect]
     Active Substance: DUPILUMAB
     Indication: Asthma
     Dosage: DAILY DOSE: 300 MG
     Route: 058
     Dates: start: 2022, end: 202212
  2. DUPIXENT [Suspect]
     Active Substance: DUPILUMAB
     Dosage: DAILY DOSE: 600 MG
     Route: 058
     Dates: start: 202203, end: 2022
  3. PREDONINE [Concomitant]
     Active Substance: PREDNISOLONE
     Indication: Asthma
     Dosage: DAILY DOSE: 10 MG
     Route: 065

REACTIONS (5)
  - Eosinophilic granulomatosis with polyangiitis [Unknown]
  - Myalgia [Unknown]
  - Back pain [Unknown]
  - Mononeuropathy multiplex [Not Recovered/Not Resolved]
  - Arthralgia [Unknown]

NARRATIVE: CASE EVENT DATE: 20220101
